FAERS Safety Report 6354784-6 (Version None)
Quarter: 2009Q3

REPORT INFORMATION
  Report Type: 
  Country: None (occurrence: None)
  Receive Date: 20090914
  Receipt Date: 20090903
  Transmission Date: 20100115
  Serious: Yes (Other)
  Sender: FDA-Public Use
  Company Number: GB-PFIZER INC-2009263646

PATIENT
  Age: 59 Year

DRUGS (5)
  1. DOXYCYCLINE HYCLATE [Suspect]
     Indication: OSTEOMYELITIS
     Dosage: 100 MG, 2X/DAY
     Route: 048
     Dates: start: 20090211, end: 20090212
  2. DOXYCYCLINE HYCLATE [Suspect]
     Indication: WOUND INFECTION
  3. METFORMIN [Concomitant]
     Dosage: 1 G, 2X/DAY
     Route: 048
  4. QUININE BISULFATE [Concomitant]
     Dosage: 300 MG, 1X/DAY
     Route: 048
  5. SIMVASTATIN [Concomitant]
     Dosage: 40 MG, 1X/DAY

REACTIONS (1)
  - LIVER FUNCTION TEST ABNORMAL [None]
